FAERS Safety Report 4765353-3 (Version None)
Quarter: 2005Q3

REPORT INFORMATION
  Report Type: 
  Country: None (occurrence: None)
  Receive Date: 20050909
  Receipt Date: 20050815
  Transmission Date: 20060218
  Serious: Yes (Other)
  Sender: FDA-Public Use
  Company Number: US-MERCK-0508USA02608

PATIENT
  Age: 54 Year
  Sex: Female
  Weight: 65 kg

DRUGS (13)
  1. VYTORIN [Suspect]
     Indication: BLOOD CHOLESTEROL INCREASED
     Route: 048
     Dates: start: 20050425, end: 20050711
  2. VYTORIN [Suspect]
     Indication: HYPERLIPIDAEMIA
     Route: 048
     Dates: start: 20050425, end: 20050711
  3. CELEBREX [Concomitant]
     Indication: INTERVERTEBRAL DISC DEGENERATION
     Route: 048
     Dates: start: 20020101
  4. DIGITEK [Concomitant]
     Indication: ARRHYTHMIA
     Route: 048
     Dates: start: 20020101
  5. NASACORT [Concomitant]
     Indication: RHINITIS ALLERGIC
     Route: 065
  6. PRILOSEC [Concomitant]
     Indication: GASTROOESOPHAGEAL REFLUX DISEASE
     Route: 048
     Dates: start: 20040501
  7. GLUCOSAMINE [Concomitant]
     Indication: INTERVERTEBRAL DISC DEGENERATION
     Route: 065
  8. MULTIVITAMIN [Concomitant]
     Route: 065
  9. CALTRATE 600 PLUS VITAMIN D [Concomitant]
     Route: 065
     Dates: start: 20040801
  10. ASCORBIC ACID [Concomitant]
     Route: 065
  11. OMEGA-3 MARINE TRIGLYCERIDES [Concomitant]
     Route: 065
  12. ESTROGEN (UNSPECIFIED) AND PROGESTERONE [Concomitant]
     Route: 065
     Dates: start: 20040524
  13. LYSINE [Concomitant]
     Route: 065

REACTIONS (6)
  - RASH [None]
  - RASH GENERALISED [None]
  - SWELLING FACE [None]
  - SWOLLEN TONGUE [None]
  - THROAT TIGHTNESS [None]
  - URTICARIA [None]
